FAERS Safety Report 7105533-5 (Version None)
Quarter: 2010Q4

REPORT INFORMATION
  Report Type: 
  Country: None (occurrence: None)
  Receive Date: 20101116
  Receipt Date: 20101104
  Transmission Date: 20110411
  Serious: Yes (Hospitalization)
  Sender: FDA-Public Use
  Company Number: DE-ROCHE-739575

PATIENT
  Sex: Female

DRUGS (4)
  1. PEGASYS [Suspect]
     Indication: HEPATITIS C
     Route: 065
     Dates: start: 20100126
  2. PEGASYS [Suspect]
     Dosage: REDUCED DOSAGE
     Route: 065
     Dates: end: 20101006
  3. COPEGUS [Suspect]
     Indication: HEPATITIS C
     Route: 048
     Dates: start: 20100126
  4. COPEGUS [Suspect]
     Dosage: REDUCED DOSAGE
     Route: 048
     Dates: end: 20101012

REACTIONS (4)
  - ANAEMIA [None]
  - LEUKOPENIA [None]
  - PAPILLOEDEMA [None]
  - VISUAL IMPAIRMENT [None]
